FAERS Safety Report 24735400 (Version 1)
Quarter: 2024Q4

REPORT INFORMATION
  Report Type: Other
  Country: LT (occurrence: LT)
  Receive Date: 20241215
  Receipt Date: 20241215
  Transmission Date: 20250115
  Serious: Yes (Other)
  Sender: Steriscience PTE
  Company Number: LT-PFIZER INC-PV202400154019

PATIENT
  Age: 46 Year
  Sex: Female

DRUGS (8)
  1. MEROPENEM [Suspect]
     Active Substance: MEROPENEM
     Indication: Evidence based treatment
     Dosage: 6000 MILLIGRAM, QD, 2000 MG, 3X/DAY
     Route: 065
  2. AVIBACTAM SODIUM\CEFTAZIDIME [Suspect]
     Active Substance: AVIBACTAM SODIUM\CEFTAZIDIME
     Indication: Anti-infective therapy
     Dosage: 7500 MILLIGRAM, QD, 2500 MG, 3X/DAY
     Route: 065
  3. LINEZOLID [Suspect]
     Active Substance: LINEZOLID
     Indication: Anti-infective therapy
     Dosage: 1200 MILLIGRAM, QD, 600 MG, 2X/DAY
     Route: 065
  4. ACYCLOVIR [Suspect]
     Active Substance: ACYCLOVIR
     Indication: Anti-infective therapy
     Dosage: 750 MILLIGRAM, QD, 250 MG, 3X/DAY
     Route: 042
  5. ACYCLOVIR [Suspect]
     Active Substance: ACYCLOVIR
     Indication: Evidence based treatment
     Dosage: 800 MILLIGRAM, QD, 400 MG, 2X/DAY
     Route: 065
  6. MICAFUNGIN [Suspect]
     Active Substance: MICAFUNGIN SODIUM
     Indication: Prophylaxis
     Dosage: UNK
     Route: 065
  7. METRONIDAZOLE [Suspect]
     Active Substance: METRONIDAZOLE
     Indication: Product used for unknown indication
     Dosage: 1500 MILLIGRAM, QD, 500 MG, 3X/DAY
     Route: 065
  8. VALACYCLOVIR [Suspect]
     Active Substance: VALACYCLOVIR HYDROCHLORIDE
     Indication: Product used for unknown indication
     Dosage: 3000 MILLIGRAM, QD, 1000 MG, 3X/DAY
     Route: 065

REACTIONS (5)
  - Liver abscess [Unknown]
  - Abscess intestinal [Unknown]
  - Pericardial effusion [Unknown]
  - Pleural effusion [Unknown]
  - Drug effect less than expected [Unknown]
